FAERS Safety Report 21992560 (Version 1)
Quarter: 2023Q1

REPORT INFORMATION
  Report Type: Report from Study
  Country: BE (occurrence: BE)
  Receive Date: 20230215
  Receipt Date: 20230215
  Transmission Date: 20230417
  Serious: No
  Sender: FDA-Public Use
  Company Number: BE-FEDR-MF-002-2051001-20200408-0001SG

PATIENT
  Age: 76 Year
  Sex: Male
  Weight: 61 kg

DRUGS (4)
  1. LAMOTRIGINE [Concomitant]
     Active Substance: LAMOTRIGINE
     Indication: Epilepsy
     Dosage: 50 MG X 2 X 1 DAYS
     Route: 048
     Dates: start: 20110504
  2. LOORTAN PLUS(100 MG LOSARTAN/25 MG HYDROCHLOORTHIAZIDE) [Concomitant]
     Indication: Hypertension
     Dosage: 1 TABLET X 1 X 1 DAYS
     Route: 048
     Dates: start: 20130805
  3. LORMETAZEPAM [Concomitant]
     Active Substance: LORMETAZEPAM
     Indication: Insomnia
     Dosage: 2 MG X 1 X 1 DAYS
     Route: 048
     Dates: start: 20191115, end: 20200221
  4. ZOLPIDEM [Concomitant]
     Active Substance: ZOLPIDEM TARTRATE
     Indication: Insomnia
     Dosage: 10 MG X 1 X 1 DAYS
     Route: 048
     Dates: start: 20200128

REACTIONS (1)
  - Vitamin B1 decreased [Recovered/Resolved]

NARRATIVE: CASE EVENT DATE: 20200313
